FAERS Safety Report 8582307-X (Version None)
Quarter: 2012Q3

REPORT INFORMATION
  Report Type: 
  Country: None (occurrence: None)
  Receive Date: 20120809
  Receipt Date: 20120803
  Transmission Date: 20120928
  Serious: Yes (Other)
  Sender: FDA-Public Use
  Company Number: PHHY2011US33952

PATIENT
  Age: 22 Year
  Sex: Female

DRUGS (1)
  1. NEORAL [Suspect]
     Indication: THROMBOTIC THROMBOCYTOPENIC PURPURA
     Dosage: 100 MG, BID

REACTIONS (5)
  - GENERAL PHYSICAL HEALTH DETERIORATION [None]
  - INDUCED LABOUR [None]
  - MATERNAL EXPOSURE DURING PREGNANCY [None]
  - PRE-ECLAMPSIA [None]
  - PREMATURE LABOUR [None]
